FAERS Safety Report 8823121 (Version 2)
Quarter: 2012Q4

REPORT INFORMATION
  Report Type: 
  Country: US (occurrence: US)
  Receive Date: 20121003
  Receipt Date: 20121025
  Transmission Date: 20130627
  Serious: Yes (Hospitalization)
  Sender: FDA-Public Use
  Company Number: US-ROCHE-1133869

PATIENT
  Sex: Female
  Weight: 97.4 kg

DRUGS (3)
  1. VALCYTE [Suspect]
     Indication: ANTIVIRAL PROPHYLAXIS
     Route: 048
     Dates: start: 20120831
  2. TACROLIMUS [Concomitant]
     Indication: IMMUNOSUPPRESSION
     Route: 048
     Dates: start: 20120831
  3. MYCOPHENOLATE [Concomitant]
     Indication: IMMUNOSUPPRESSION
     Route: 048
     Dates: start: 20120831

REACTIONS (2)
  - Antibody test abnormal [Unknown]
  - Transplant rejection [Recovered/Resolved]
